FAERS Safety Report 9579908 (Version 1)
Quarter: 2013Q3

REPORT INFORMATION
  Report Type: Spontaneous
  Country: US (occurrence: None)
  Receive Date: 20130916
  Receipt Date: 20130916
  Transmission Date: 20140515
  Serious: Yes (Other)
  Sender: FDA-Public Use
  Company Number: JPI-P-026431

PATIENT
  Age: 19 Year
  Sex: Female
  Weight: 42.18 kg

DRUGS (13)
  1. XYREM (500 MILLIGRAM/MILLILITERS, SOLUTION) (SODIUM OXYBATE) [Suspect]
     Indication: FIBROMYALGIA
     Dosage: 4.5 GM (2.25 MG, 2 IN 1 D), ORAL
     Route: 048
     Dates: start: 20121114, end: 201211
  2. XYREM (500 MILLIGRAM/MILLILITERS, SOLUTION) (SODIUM OXYBATE) [Suspect]
     Indication: INSOMNIA
     Dosage: 4.5 GM (2.25 MG, 2 IN 1 D), ORAL
     Route: 048
     Dates: start: 20121114, end: 201211
  3. XYRICA (PREGABALIN) [Concomitant]
  4. MELATONIN [Concomitant]
  5. SAVELLA (MILNACIPRAN HYDROCHLORIDE) [Concomitant]
  6. CITALOPRAM [Concomitant]
  7. BUTRANS (BUPRENORPHINE) [Concomitant]
  8. METHYLPHENIDATE [Concomitant]
  9. ONDANSETRON [Concomitant]
  10. TRAMADOL [Concomitant]
  11. PERCOCET (ACETAMINOPHEN AND OXYCODONE) [Concomitant]
  12. LUNESTA (ESZOPICLONE) [Concomitant]
  13. VILAZODONE HYDROCHLORIDE [Concomitant]

REACTIONS (7)
  - Weight decreased [None]
  - Anxiety [None]
  - Condition aggravated [None]
  - Nausea [None]
  - Somnolence [None]
  - Hangover [None]
  - Aphagia [None]
